FAERS Safety Report 5901800-9 (Version None)
Quarter: 2008Q3

REPORT INFORMATION
  Report Type: 
  Country: None (occurrence: None)
  Receive Date: 20080929
  Receipt Date: 20080925
  Transmission Date: 20090109
  Serious: Yes (Death)
  Sender: FDA-Public Use
  Company Number: BE-ASTRAZENECA-2008AC02554

PATIENT
  Sex: Female

DRUGS (4)
  1. ZESTRIL [Suspect]
  2. GLURENORM [Suspect]
  3. PLAVIX [Suspect]
  4. AMLOD [Suspect]

REACTIONS (1)
  - INTESTINAL ISCHAEMIA [None]
